FAERS Safety Report 22984605 (Version 5)
Quarter: 2023Q4

REPORT INFORMATION
  Report Type: Spontaneous
  Country: DE (occurrence: DE)
  Receive Date: 20230926
  Receipt Date: 20231204
  Transmission Date: 20240110
  Serious: Yes (Hospitalization)
  Sender: FDA-Public Use
  Company Number: DE-BIOGEN-2023BI01227898

PATIENT
  Sex: Female

DRUGS (2)
  1. DALFAMPRIDINE [Suspect]
     Active Substance: DALFAMPRIDINE
     Indication: Gait disturbance
     Route: 050
  2. DALFAMPRIDINE [Suspect]
     Active Substance: DALFAMPRIDINE
     Route: 050
     Dates: start: 20220913

REACTIONS (4)
  - Gait disturbance [Not Recovered/Not Resolved]
  - Contusion [Unknown]
  - Fall [Recovered/Resolved]
  - Gait inability [Recovered/Resolved]

NARRATIVE: CASE EVENT DATE: 20230921
